FAERS Safety Report 26010885 (Version 1)
Quarter: 2025Q4

REPORT INFORMATION
  Report Type: Spontaneous
  Country: SY (occurrence: SY)
  Receive Date: 20251107
  Receipt Date: 20251107
  Transmission Date: 20260118
  Serious: Yes (Life-Threatening, Hospitalization, Other)
  Sender: AJANTA PHARMA USA INC
  Company Number: SY-AJANTA-2025AJA00146

PATIENT
  Age: 22 Year
  Sex: Female

DRUGS (3)
  1. METFORMIN HYDROCHLORIDE [Suspect]
     Active Substance: METFORMIN HYDROCHLORIDE
     Indication: Weight decreased
  2. THIAMINE [Concomitant]
     Active Substance: THIAMINE
     Indication: Anorexia nervosa
     Route: 042
     Dates: start: 202205, end: 2022
  3. THIAMINE [Concomitant]
     Active Substance: THIAMINE
     Route: 042
     Dates: start: 202208

REACTIONS (5)
  - Multiple organ dysfunction syndrome [Recovered/Resolved]
  - Drug abuse [Unknown]
  - Lactic acidosis [Recovered/Resolved]
  - Toxicity to various agents [Recovered/Resolved]
  - Overdose [Unknown]

NARRATIVE: CASE EVENT DATE: 20220101
